FAERS Safety Report 7967419-3 (Version None)
Quarter: 2011Q4

REPORT INFORMATION
  Report Type: 
  Country: None (occurrence: None)
  Receive Date: 20111209
  Receipt Date: 20111129
  Transmission Date: 20120403
  Serious: Yes (Other)
  Sender: FDA-Public Use
  Company Number: US-US-EMD SERONO, INC.-7088220

PATIENT
  Sex: Female
  Weight: 98 kg

DRUGS (8)
  1. REBIF [Suspect]
     Indication: RELAPSING-REMITTING MULTIPLE SCLEROSIS
     Route: 058
     Dates: end: 20100901
  2. SERTRALINE HYDROCHLORIDE [Concomitant]
  3. GEMFIBROZIL [Concomitant]
  4. FLUTICASONE PROPIONATE [Concomitant]
  5. BACLOFEN [Concomitant]
     Route: 048
  6. LEVOTHYROXINE SODIUM [Concomitant]
  7. REBIF [Suspect]
     Route: 058
     Dates: start: 20110522
  8. EXFORGE [Concomitant]
     Dosage: 5 MG - 160 MG

REACTIONS (5)
  - NERVE ROOT LESION [None]
  - DEPRESSION [None]
  - INTERVERTEBRAL DISC COMPRESSION [None]
  - CARPAL TUNNEL SYNDROME [None]
  - OPTIC NEURITIS [None]
